FAERS Safety Report 7314785-8 (Version None)
Quarter: 2011Q1

REPORT INFORMATION
  Report Type: 
  Country: None (occurrence: None)
  Receive Date: 20110225
  Receipt Date: 20110118
  Transmission Date: 20110831
  Serious: No
  Sender: FDA-Public Use
  Company Number: US-MYLANLABS-2010S1022525

PATIENT
  Age: 17 Year
  Sex: Male

DRUGS (6)
  1. AMNESTEEM [Suspect]
     Route: 048
     Dates: end: 20101205
  2. CLARAVIS [Suspect]
     Indication: ACNE
     Route: 048
     Dates: start: 20100727
  3. AMNESTEEM [Suspect]
     Route: 048
     Dates: start: 20100629, end: 20100726
  4. AMNESTEEM [Suspect]
     Route: 048
     Dates: end: 20101205
  5. CLARAVIS [Suspect]
     Route: 048
     Dates: start: 20100727
  6. AMNESTEEM [Suspect]
     Indication: ACNE
     Route: 048
     Dates: start: 20100629, end: 20100726

REACTIONS (3)
  - EDUCATIONAL PROBLEM [None]
  - MOOD ALTERED [None]
  - AFFECT LABILITY [None]
